FAERS Safety Report 24719677 (Version 1)
Quarter: 2024Q4

REPORT INFORMATION
  Report Type: Spontaneous
  Country: GB (occurrence: GB)
  Receive Date: 20241211
  Receipt Date: 20241211
  Transmission Date: 20250115
  Serious: Yes (Other)
  Sender: TEVA
  Company Number: GB-MHRA-TPP7827881C9600973YC1732874238533

PATIENT
  Age: 43 Year
  Sex: Female
  Weight: 78 kg

DRUGS (5)
  1. NAPROXEN [Suspect]
     Active Substance: NAPROXEN
     Indication: Joint injury
     Route: 048
     Dates: start: 20241021, end: 20241028
  2. ZEROBASE [Concomitant]
     Indication: Ill-defined disorder
     Dosage: APPLY TO DRY SKIN REGULARLY
     Dates: start: 20241121
  3. BETAMETHASONE VALERATE [Concomitant]
     Active Substance: BETAMETHASONE VALERATE
     Indication: Ill-defined disorder
     Dosage: APPLY AS DIRECTED THINLY
     Dates: start: 20241121
  4. OMEPRAZOLE [Concomitant]
     Active Substance: OMEPRAZOLE
     Indication: Ill-defined disorder
     Dates: start: 20241021, end: 20241028
  5. CODEINE PHOSPHATE [Concomitant]
     Active Substance: CODEINE PHOSPHATE
     Indication: Ill-defined disorder
     Dates: start: 20241021, end: 20241028

REACTIONS (2)
  - Chest discomfort [Recovering/Resolving]
  - Wheezing [Unknown]
